FAERS Safety Report 11202780 (Version 2)
Quarter: 2015Q3

REPORT INFORMATION
  Report Type: Spontaneous
  Country: US (occurrence: US)
  Receive Date: 20150619
  Receipt Date: 20150909
  Transmission Date: 20151125
  Serious: No
  Sender: FDA-Public Use
  Company Number: US-009507513-1506USA005481

PATIENT
  Sex: Male
  Weight: 78 kg

DRUGS (2)
  1. GRASTEK [Suspect]
     Active Substance: PHLEUM PRATENSE POLLEN
     Indication: RHINITIS ALLERGIC
     Dosage: 2800 BAU ONCE A DAY
     Route: 060
     Dates: start: 20150303, end: 20150505
  2. GRASTEK [Suspect]
     Active Substance: PHLEUM PRATENSE POLLEN
     Dosage: 2800 BAU ONCE A DAY
     Route: 060
     Dates: start: 2015, end: 2015

REACTIONS (2)
  - Swollen tongue [Recovered/Resolved]
  - Swollen tongue [Recovered/Resolved]

NARRATIVE: CASE EVENT DATE: 2015
